FAERS Safety Report 10185079 (Version 1)
Quarter: 2014Q2

REPORT INFORMATION
  Report Type: Spontaneous
  Country: JP (occurrence: JP)
  Receive Date: 20140521
  Receipt Date: 20140521
  Transmission Date: 20141212
  Serious: Yes (Death)
  Sender: FDA-Public Use
  Company Number: JP-B.I. PHARMACEUTICALS,INC./RIDGEFIELD-2014-BI-22269NB

PATIENT
  Age: 86 Year
  Sex: Male

DRUGS (8)
  1. MICARDIS [Suspect]
     Indication: PRODUCT USED FOR UNKNOWN INDICATION
     Dosage: 40 MG
     Route: 048
  2. GONAX [Suspect]
     Indication: PROSTATE CANCER
     Dosage: 240 MG
     Route: 058
     Dates: start: 20131028
  3. GONAX [Suspect]
     Dosage: 80 MG
     Route: 058
  4. SEROQUEL [Suspect]
     Indication: PRODUCT USED FOR UNKNOWN INDICATION
     Route: 048
  5. ZOMETA [Concomitant]
     Dosage: NR
     Route: 065
  6. WARFARIN [Concomitant]
     Dosage: UNK
     Route: 048
  7. RISPERDAL [Concomitant]
     Dosage: UNK
     Route: 048
  8. URIEF [Concomitant]
     Dosage: UNK
     Route: 048

REACTIONS (1)
  - Aortic rupture [Fatal]
